FAERS Safety Report 8111094-4 (Version None)
Quarter: 2012Q1

REPORT INFORMATION
  Report Type: 
  Country: None (occurrence: None)
  Receive Date: 20120203
  Receipt Date: 20110412
  Transmission Date: 20120608
  Serious: No
  Sender: FDA-Public Use
  Company Number: US-GLAXOSMITHKLINE-A0922682A

PATIENT
  Age: 56 Year
  Sex: Female

DRUGS (12)
  1. DEPAKOTE ER [Concomitant]
  2. BENTYL [Concomitant]
  3. PROZAC [Concomitant]
  4. LAMICTAL [Suspect]
     Indication: BIPOLAR DISORDER
     Dosage: 25MG ALTERNATE DAYS
     Route: 048
     Dates: start: 20110411
  5. PROTONIX [Concomitant]
  6. VISTARIL [Concomitant]
  7. TOPAMAX [Concomitant]
  8. SEROQUEL [Concomitant]
  9. VITAMIN B-12 [Concomitant]
  10. XANAX [Concomitant]
  11. SYNTHROID [Concomitant]
  12. DETROL LA [Concomitant]

REACTIONS (6)
  - DIZZINESS [None]
  - MENTAL IMPAIRMENT [None]
  - IMPAIRED DRIVING ABILITY [None]
  - FEELING ABNORMAL [None]
  - ILL-DEFINED DISORDER [None]
  - SOMNOLENCE [None]
